FAERS Safety Report 5048426-X (Version None)
Quarter: 2006Q3

REPORT INFORMATION
  Report Type: 
  Country: None (occurrence: None)
  Receive Date: 20060705
  Receipt Date: 20060627
  Transmission Date: 20061208
  Serious: Yes (Hospitalization, Other)
  Sender: FDA-Public Use
  Company Number: 2006AL001622

PATIENT
  Sex: Male

DRUGS (1)
  1. LORAZEPAM [Suspect]
     Indication: ANXIETY
     Dosage: 1 MG; PO
     Route: 048

REACTIONS (3)
  - DRUG INEFFECTIVE [None]
  - DRUG LEVEL DECREASED [None]
  - PANIC ATTACK [None]
